FAERS Safety Report 21677590 (Version 1)
Quarter: 2022Q4

REPORT INFORMATION
  Report Type: Report from Study
  Country: US (occurrence: US)
  Receive Date: 20221203
  Receipt Date: 20221203
  Transmission Date: 20230112
  Serious: No
  Sender: FDA-Public Use
  Company Number: US-ABBVIE-4221718

PATIENT
  Sex: Female

DRUGS (2)
  1. IMBRUVICA [Suspect]
     Active Substance: IBRUTINIB
     Indication: Chronic lymphocytic leukaemia
     Dosage: FORM STRENGTH WAS 420 MILLIGRAM
     Route: 048
     Dates: start: 20180502
  2. IMBRUVICA [Suspect]
     Active Substance: IBRUTINIB
     Indication: Chronic lymphocytic leukaemia
     Dosage: FORM STRENGTH WAS 140 MILLIGRAM
     Route: 048
     Dates: start: 20170209, end: 20180502

REACTIONS (2)
  - Limb injury [Unknown]
  - Arthralgia [Recovering/Resolving]
